FAERS Safety Report 9247676 (Version 2)
Quarter: 2013Q2

REPORT INFORMATION
  Report Type: Report from Study
  Country: NL (occurrence: NL)
  Receive Date: 20130423
  Receipt Date: 20130520
  Transmission Date: 20140414
  Serious: Yes (Death)
  Sender: FDA-Public Use
  Company Number: PHHY2013NL039159

PATIENT
  Sex: Male

DRUGS (9)
  1. ZOMETA [Suspect]
     Indication: PROSTATE CANCER METASTATIC
     Dosage: 4MG/100 ML ONCE PER 21 DAYS
  2. ZOMETA [Suspect]
     Dosage: 4MG/100 ML ONCE PER 21 DAYS
     Dates: start: 20120709
  3. ZOMETA [Suspect]
     Dosage: 4MG/100 ML ONCE PER 21 DAYS
     Dates: start: 20130306
  4. ZOMETA [Suspect]
     Dosage: 4MG/100 ML ONCE PER 21 DAYS
     Dates: start: 20130327
  5. ASCAL [Concomitant]
     Dosage: UNK UKN, UNK
  6. METFORMINE [Concomitant]
     Dosage: UNK UKN, UNK
  7. THIAMINE [Concomitant]
     Dosage: UNK UKN, UNK
  8. PANTOZOL [Concomitant]
     Dosage: UNK UKN, UNK
  9. PERSANTIN [Concomitant]
     Dosage: UNK UKN, UNK

REACTIONS (1)
  - Death [Fatal]
